FAERS Safety Report 5232245-5 (Version None)
Quarter: 2007Q1

REPORT INFORMATION
  Report Type: 
  Country: None (occurrence: None)
  Receive Date: 20070207
  Receipt Date: 20070125
  Transmission Date: 20070707
  Serious: Yes (Hospitalization, Other)
  Sender: FDA-Public Use
  Company Number: PHEH2007US01270

PATIENT
  Age: 16 Year
  Sex: Female

DRUGS (4)
  1. TRILEPTAL [Suspect]
     Indication: COMPLEX PARTIAL SEIZURES
     Dosage: 150 MG, BID
     Route: 048
     Dates: start: 20061101
  2. TRILEPTAL [Suspect]
     Dosage: 300 MG, BID
     Route: 048
  3. TRILEPTAL [Suspect]
     Dosage: 450 MG, BID
     Route: 048
  4. TRILEPTAL [Suspect]
     Dosage: 450 MG, QD
     Route: 048
     Dates: end: 20070121

REACTIONS (10)
  - AMNESIA [None]
  - COMA [None]
  - DEPRESSION [None]
  - FEELING DRUNK [None]
  - HALLUCINATION [None]
  - HYPOVENTILATION [None]
  - INTENTIONAL OVERDOSE [None]
  - SELF-INJURIOUS IDEATION [None]
  - SUICIDAL IDEATION [None]
  - SUICIDE ATTEMPT [None]
